FAERS Safety Report 14982105 (Version 1)
Quarter: 2018Q2

REPORT INFORMATION
  Report Type: Report from Study
  Country: FR (occurrence: FR)
  Receive Date: 20180607
  Receipt Date: 20180607
  Transmission Date: 20180711
  Serious: Yes (Other)
  Sender: FDA-Public Use
  Company Number: FR-ASTRAZENECA-2018SE72657

PATIENT
  Age: 21107 Day
  Sex: Male
  Weight: 101 kg

DRUGS (1)
  1. DURVALUMAB. [Suspect]
     Active Substance: DURVALUMAB
     Indication: NON-SMALL CELL LUNG CANCER
     Route: 042
     Dates: start: 20180221, end: 20180530

REACTIONS (6)
  - Thyroiditis [Unknown]
  - Hyperthyroidism [Not Recovered/Not Resolved]
  - Paraesthesia [Unknown]
  - Ocular hyperaemia [Unknown]
  - Insomnia [Unknown]
  - Polyneuropathy [Not Recovered/Not Resolved]

NARRATIVE: CASE EVENT DATE: 20180321
